FAERS Safety Report 6379539-8 (Version None)
Quarter: 2009Q3

REPORT INFORMATION
  Report Type: 
  Country: None (occurrence: None)
  Receive Date: 20090923
  Receipt Date: 20090908
  Transmission Date: 20100115
  Serious: Yes (Hospitalization, Other)
  Sender: FDA-Public Use
  Company Number: AUR-APL-2009-00626

PATIENT
  Age: 68 Year
  Sex: Male

DRUGS (4)
  1. CEFTRIAXONE SODIUM INJECTABLE [Suspect]
     Indication: EVIDENCE BASED TREATMENT
     Dosage: 2GM - Q12 HOURS - IV
     Route: 042
  2. CASPOFUNGIN [Concomitant]
  3. METRONIDAZOLE [Concomitant]
  4. CORTICOSTEROIDS [Concomitant]

REACTIONS (4)
  - BLOOD GLUCOSE INCREASED [None]
  - CHOLECYSTITIS ACUTE [None]
  - CHOLELITHIASIS [None]
  - HAEMOGLOBIN DECREASED [None]
